FAERS Safety Report 9632090 (Version 3)
Quarter: 2013Q4

REPORT INFORMATION
  Report Type: Report from Study
  Country: JP (occurrence: JP)
  Receive Date: 20131018
  Receipt Date: 20131107
  Transmission Date: 20140711
  Serious: Yes (Other)
  Sender: FDA-Public Use
  Company Number: JP-OTSUKA-JP-2013-14491

PATIENT
  Age: 57 Year
  Sex: Male
  Weight: 69.6 kg

DRUGS (21)
  1. SAMSCA [Suspect]
     Indication: FLUID RETENTION
     Dosage: 7.5 MG MILLIGRAM(S), QAM
     Route: 048
     Dates: start: 20130903, end: 20130912
  2. SAMSCA [Suspect]
     Dosage: 15 MG MILLIGRAM(S), QAM
     Route: 048
     Dates: start: 20130913, end: 20130919
  3. ALDACTONE A [Suspect]
     Indication: CARDIAC FAILURE
     Dosage: 50 MG MILLIGRAM(S), DAILY DOSE
     Route: 048
     Dates: end: 20130915
  4. ALDACTONE A [Suspect]
     Dosage: 25 MG MILLIGRAM(S), DAILY DOSE
     Route: 048
     Dates: start: 20130916, end: 20130917
  5. LASIX [Suspect]
     Indication: CARDIAC FAILURE
     Dosage: 240 MG MILLIGRAM(S), DAILY DOSE
     Route: 048
     Dates: end: 20130819
  6. LASIX [Suspect]
     Dosage: 280 MG MILLIGRAM(S), DAILY DOSE
     Route: 048
     Dates: start: 20130820, end: 20130902
  7. LASIX [Suspect]
     Dosage: 240 MG MILLIGRAM(S), DAILY DOSE
     Route: 048
     Dates: start: 20130903, end: 20130904
  8. LASIX [Suspect]
     Dosage: 200 MG MILLIGRAM(S), DAILY DOSE
     Route: 048
     Dates: start: 20130905, end: 20130906
  9. LASIX [Suspect]
     Dosage: 160 MG MILLIGRAM(S), DAILY DOSE
     Route: 048
     Dates: start: 20130907, end: 20130908
  10. LASIX [Suspect]
     Dosage: 120 MG MILLIGRAM(S), DAILY DOSE
     Route: 048
     Dates: start: 20130909, end: 20130916
  11. LASIX [Suspect]
     Dosage: 80 MG MILLIGRAM(S), DAILY DOSE
     Route: 048
     Dates: start: 20130917, end: 20130917
  12. LASIX [Suspect]
     Dosage: 40 MG MILLIGRAM(S), DAILY DOSE
     Route: 048
     Dates: start: 20130918, end: 20130924
  13. LASIX [Suspect]
     Dosage: 80 MG MILLIGRAM(S), DAILY DOSE
     Route: 048
     Dates: start: 20130925
  14. ZYLORIC [Concomitant]
     Dosage: 200 MG MILLIGRAM(S), DAILY DOSE
     Route: 048
     Dates: end: 20130902
  15. DIART [Concomitant]
     Indication: CARDIAC FAILURE
     Dosage: 60 MG MILLIGRAM(S), DAILY DOSE
     Route: 048
     Dates: end: 20130902
  16. COVERSYL [Concomitant]
     Indication: CARDIAC FAILURE
     Dosage: 4 MG MILLIGRAM(S), DAILY DOSE
     Route: 048
     Dates: end: 20130919
  17. COVERSYL [Concomitant]
     Dosage: 2 MG MILLIGRAM(S), DAILY DOSE
     Route: 048
     Dates: start: 20130927
  18. TAKEPRON [Concomitant]
     Indication: PROPHYLAXIS
     Dosage: 15 MG MILLIGRAM(S), DAILY DOSE
     Route: 048
  19. ZOLPIDEM TARTRATE [Concomitant]
     Dosage: 5 MG MILLIGRAM(S), DAILY DOSE
     Route: 048
  20. FEBURIC [Concomitant]
     Dosage: 20 MG MILLIGRAM(S), DAILY DOSE
     Route: 048
     Dates: start: 20130903
  21. THYRADIN S [Concomitant]
     Dosage: 12.5 MCG, DAILY DOSE
     Route: 048
     Dates: start: 20130905

REACTIONS (5)
  - Blood urea increased [Recovered/Resolved]
  - Blood potassium increased [Recovered/Resolved]
  - Dehydration [Recovered/Resolved]
  - Blood creatinine increased [Recovered/Resolved]
  - Blood sodium decreased [Recovered/Resolved]
